FAERS Safety Report 25084783 (Version 4)
Quarter: 2025Q3

REPORT INFORMATION
  Report Type: Spontaneous
  Country: US (occurrence: US)
  Receive Date: 20250317
  Receipt Date: 20250822
  Transmission Date: 20251021
  Serious: No
  Sender: SANOFI AVENTIS
  Company Number: US-SA-2025SA075762

PATIENT
  Age: 51 Year
  Sex: Male

DRUGS (23)
  1. DUPIXENT [Suspect]
     Active Substance: DUPILUMAB
     Indication: Dermatitis
     Dosage: 300 MG, QOW
     Route: 058
     Dates: start: 20250228
  2. DUPIXENT [Suspect]
     Active Substance: DUPILUMAB
     Indication: Dermatitis atopic
  3. VITAMIN D3 [Concomitant]
     Active Substance: CHOLECALCIFEROL
  4. VITAMIN C [Concomitant]
     Active Substance: ASCORBIC ACID
  5. VITAMIN B12 [Concomitant]
     Active Substance: CYANOCOBALAMIN
  6. TRIAMCINOLONE [Concomitant]
     Active Substance: TRIAMCINOLONE
  7. TRIAMCINOLONE ACETONIDE [Concomitant]
     Active Substance: TRIAMCINOLONE ACETONIDE
  8. TREMFYA [Concomitant]
     Active Substance: GUSELKUMAB
  9. ROSUVASTATIN [Concomitant]
     Active Substance: ROSUVASTATIN
  10. ROSUVASTATIN [Concomitant]
     Active Substance: ROSUVASTATIN
  11. PREDNISONE [Concomitant]
     Active Substance: PREDNISONE
  12. ORENCIA [Concomitant]
     Active Substance: ABATACEPT
  13. ORENCIA [Concomitant]
     Active Substance: ABATACEPT
  14. OLMESARTAN MEDOXOMIL [Concomitant]
     Active Substance: OLMESARTAN MEDOXOMIL
  15. METHOTREXATE [Concomitant]
     Active Substance: METHOTREXATE
  16. METHOTREXATE [Concomitant]
     Active Substance: METHOTREXATE
  17. IRON [Concomitant]
     Active Substance: IRON
  18. CALCIUM [Concomitant]
     Active Substance: CALCIUM
  19. CALCIPOTRIENE [Concomitant]
     Active Substance: CALCIPOTRIENE
  20. FOLIC ACID [Concomitant]
     Active Substance: FOLIC ACID
  21. CYCLOBENZAPRINE [Concomitant]
     Active Substance: CYCLOBENZAPRINE
  22. ALEVE [Concomitant]
     Active Substance: NAPROXEN SODIUM
  23. BIMZELX [Concomitant]
     Active Substance: BIMEKIZUMAB-BKZX

REACTIONS (3)
  - Sleep disorder due to a general medical condition [Not Recovered/Not Resolved]
  - Pain [Unknown]
  - Drug effective for unapproved indication [Unknown]

NARRATIVE: CASE EVENT DATE: 20250101
